FAERS Safety Report 22374155 (Version 2)
Quarter: 2023Q2

REPORT INFORMATION
  Report Type: Report from Study
  Country: PT (occurrence: PT)
  Receive Date: 20230526
  Receipt Date: 20230614
  Transmission Date: 20230721
  Serious: Yes (Death, Other)
  Sender: FDA-Public Use
  Company Number: PT-TAKEDA-PT201618697

PATIENT
  Age: 23 Year
  Sex: Male

DRUGS (4)
  1. IDURSULFASE [Suspect]
     Active Substance: IDURSULFASE
     Indication: Mucopolysaccharidosis II
     Dosage: UNK
     Route: 041
  2. CALCIUM\VITAMIN D [Concomitant]
     Active Substance: CALCIUM\VITAMIN D
     Indication: Osteoporosis
     Dosage: UNK
     Route: 065
     Dates: start: 2002
  3. VALPROIC ACID [Concomitant]
     Active Substance: VALPROIC ACID
     Indication: Nervous system disorder
     Dosage: UNK
     Route: 065
     Dates: start: 2002
  4. OMEPRAZOLE [Concomitant]
     Active Substance: OMEPRAZOLE
     Indication: Gastrointestinal disorder
     Dosage: UNK
     Route: 065
     Dates: start: 2008

REACTIONS (1)
  - Cardiopulmonary failure [Fatal]

NARRATIVE: CASE EVENT DATE: 20140424
